FAERS Safety Report 16996900 (Version 1)
Quarter: 2019Q4

REPORT INFORMATION
  Report Type: Spontaneous
  Country: AT (occurrence: AT)
  Receive Date: 20191106
  Receipt Date: 20191106
  Transmission Date: 20200122
  Serious: Yes (Life-Threatening)
  Sender: FDA-Public Use
  Company Number: AT-ACCORD-159923

PATIENT
  Age: 68 Year
  Sex: Female

DRUGS (12)
  1. B12 ANKERMANN [Concomitant]
     Dosage: EVERY 6 WEEKS, 1,000, B12 ANKERMANN IJLSG 1 MG / 1 ML 10 PCS
  2. DILTIAZEM RATIOPHARM [Concomitant]
     Active Substance: DILTIAZEM
     Dosage: 0.5 - 0 - 0.5, 60 MG - TABLETS (TEVA)
     Route: 048
  3. BONEFOS [Concomitant]
     Active Substance: CLODRONATE DISODIUM
     Dosage: EVERY 14 DAYS, 300 MG - CONCENTRATE FOR INFUSION PREPARATION (BAYER)
  4. MOLAXOLE MEDA [Concomitant]
     Dosage: 2X1 B.B., POWDER FOR THE PRODUCTION OF ORAL SOLUTION (MEDA)
  5. MEXALEN [Concomitant]
     Active Substance: ACETAMINOPHEN
     Dosage: 3X2  B.B., 500 MG - TABLETS (TEVA)
     Route: 048
  6. FORTECORTIN MERCK [Concomitant]
     Dosage: 2X1, FORTECORTIN 8 MG - TABLETS (MERCK)
     Route: 048
  7. ATORVASTATIN [Concomitant]
     Active Substance: ATORVASTATIN
     Dosage: 0-0-1
     Route: 048
  8. CAL-D-VITA BAYER [Concomitant]
     Dosage: CAL-D-VITA CHEWABLE TABLETS (BAYER)
     Route: 048
  9. LOVENOX SANOFI [Concomitant]
     Dosage: 4,000 IU (40 MG) / 0.4 ML SOLUTION FOR INJECTION IN A FINAL SPRAY,  (SANOFI)
  10. PACLITAXEL ACCORD [Suspect]
     Active Substance: PACLITAXEL
     Indication: OVARIAN CANCER
     Dosage: STRENGTH: 6 MG / ML, ADMINISTERED 269.78 MG IN 500 ML NACL 0.9%, A FEW DROPS OF THE INFUSION
     Dates: start: 20190820, end: 20190820
  11. PANTOPRAZOLE SODIUM. [Concomitant]
     Active Substance: PANTOPRAZOLE SODIUM
     Dosage: 1-0-0
     Route: 048
  12. RAMIPRIL HCT SANDOZ [Concomitant]
     Active Substance: HYDROCHLOROTHIAZIDE\RAMIPRIL
     Dosage: 0.5 - 0-0,  5 MG / 25 MG - TABLETS
     Route: 048

REACTIONS (7)
  - Hypotension [Recovered/Resolved]
  - Dyspnoea [Recovered/Resolved]
  - Urticaria [Recovered/Resolved]
  - Flushing [Recovered/Resolved]
  - Type I hypersensitivity [Recovered/Resolved]
  - Chest discomfort [Recovered/Resolved]
  - Hypertension [Recovered/Resolved]

NARRATIVE: CASE EVENT DATE: 20190820
